FAERS Safety Report 24424165 (Version 2)
Quarter: 2025Q1

REPORT INFORMATION
  Report Type: Spontaneous
  Country: US (occurrence: US)
  Receive Date: 20241010
  Receipt Date: 20250109
  Transmission Date: 20250409
  Serious: No
  Sender: PFIZER
  Company Number: US-PFIZER INC-PV202400112709

PATIENT
  Age: 66 Year
  Sex: Male

DRUGS (1)
  1. INLYTA [Suspect]
     Active Substance: AXITINIB
     Dosage: 5 MG, 1X/DAY ( TAKE 1 TABLET (5 MG) BY MOUTH IN THE MORNING)
     Route: 048

REACTIONS (4)
  - Dry skin [Unknown]
  - Skin exfoliation [Unknown]
  - Skin fissures [Unknown]
  - Off label use [Unknown]
